FAERS Safety Report 12420885 (Version 1)
Quarter: 2016Q2

REPORT INFORMATION
  Report Type: Spontaneous
  Country: US (occurrence: US)
  Receive Date: 20160531
  Receipt Date: 20160531
  Transmission Date: 20160815
  Serious: Yes (Other)
  Sender: FDA-Public Use
  Company Number: US-JNJFOC-20160524599

PATIENT
  Age: 27 Year
  Sex: Male

DRUGS (3)
  1. HALOPERIDOL. [Suspect]
     Active Substance: HALOPERIDOL
     Indication: PRODUCT USED FOR UNKNOWN INDICATION
     Route: 065
     Dates: end: 201508
  2. ABILIFY MAINTENA [Suspect]
     Active Substance: ARIPIPRAZOLE
     Indication: SCHIZOPHRENIA
     Route: 030
     Dates: start: 20151216
  3. ABILIFY MAINTENA [Suspect]
     Active Substance: ARIPIPRAZOLE
     Indication: SCHIZOPHRENIA
     Route: 030
     Dates: start: 201508

REACTIONS (7)
  - Skin warm [Unknown]
  - Rash [Unknown]
  - Scar [Unknown]
  - Skin discolouration [Unknown]
  - Peripheral swelling [Unknown]
  - Skin fissures [Unknown]
  - Skin necrosis [Unknown]
